FAERS Safety Report 6221678-6 (Version None)
Quarter: 2009Q2

REPORT INFORMATION
  Report Type: 
  Country: None (occurrence: None)
  Receive Date: 20090605
  Receipt Date: 20090528
  Transmission Date: 20091009
  Serious: Yes (Hospitalization)
  Sender: FDA-Public Use
  Company Number: US-WYE-H08341409

PATIENT
  Age: 67 Year
  Sex: Female
  Weight: 61 kg

DRUGS (17)
  1. TORISEL [Suspect]
     Indication: MALIGNANT MELANOMA
     Dosage: 25MG IV DAYS  1 AND 8 OF 14 DAY CYCLE;20 MG LAST DOSE INTRAVENOUS
     Route: 042
     Dates: start: 20081215, end: 20090119
  2. TORISEL [Suspect]
     Indication: MALIGNANT MELANOMA
     Dosage: 25MG IV DAYS  1 AND 8 OF 14 DAY CYCLE;20 MG LAST DOSE INTRAVENOUS
     Route: 042
     Dates: start: 20090202, end: 20090202
  3. AVASTIN [Suspect]
     Dosage: 10MG/KG OVER 90 MINUTES A DAY 8 OF 14 DAY CYCLE, INTRAVENOUS
     Route: 042
     Dates: start: 20081215, end: 20090202
  4. SPIRIVA [Concomitant]
  5. ADVAIR DISKUS 100/50 [Concomitant]
  6. .. [Concomitant]
  7. KLONOPIN [Concomitant]
  8. OXYCODONE HCL [Concomitant]
  9. FENTANYL-100 [Concomitant]
  10. FLOMAX [Concomitant]
  11. MULTI-VITAMINS [Concomitant]
  12. SINGULAIR [Concomitant]
  13. PROTONIX [Concomitant]
  14. PROMETHAZINE [Concomitant]
  15. COMPAZINE [Concomitant]
  16. CYMBALTA [Concomitant]
  17. VANCOMYCIN [Concomitant]

REACTIONS (7)
  - ABDOMINAL PAIN [None]
  - BILIARY DILATATION [None]
  - BLOOD PRESSURE INCREASED [None]
  - GALLBLADDER DISORDER [None]
  - HYPOKALAEMIA [None]
  - LOCALISED INTRAABDOMINAL FLUID COLLECTION [None]
  - REVERSIBLE POSTERIOR LEUKOENCEPHALOPATHY SYNDROME [None]
